FAERS Safety Report 15209668 (Version 1)
Quarter: 2018Q3

REPORT INFORMATION
  Report Type: Spontaneous
  Country: IT (occurrence: IT)
  Receive Date: 20180727
  Receipt Date: 20180727
  Transmission Date: 20181010
  Serious: Yes (Hospitalization)
  Sender: FDA-Public Use
  Company Number: IT-MALLINCKRODT-T201803122

PATIENT
  Age: 74 Year
  Sex: Female
  Weight: 35 kg

DRUGS (1)
  1. OFIRMEV [Suspect]
     Active Substance: ACETAMINOPHEN
     Indication: PRODUCT USED FOR UNKNOWN INDICATION
     Dosage: 5 G
     Route: 048
     Dates: start: 20180607, end: 20180609

REACTIONS (3)
  - Platelet count decreased [Recovered/Resolved]
  - Transaminases increased [Recovered/Resolved]
  - Blood bilirubin increased [Recovered/Resolved]

NARRATIVE: CASE EVENT DATE: 201806
